FAERS Safety Report 6939421-1 (Version None)
Quarter: 2010Q3

REPORT INFORMATION
  Report Type: 
  Country: None (occurrence: None)
  Receive Date: 20100819
  Receipt Date: 20100804
  Transmission Date: 20110219
  Serious: Yes (Hospitalization)
  Sender: FDA-Public Use
  Company Number: 009210

PATIENT
  Age: 76 Year
  Sex: Male

DRUGS (4)
  1. PLETAL [Suspect]
     Indication: ARTERIOSCLEROSIS OBLITERANS
     Dosage: 200MG, DAILY DOSE ORAL
     Route: 048
     Dates: start: 20090101, end: 20091116
  2. PLAVIX [Suspect]
     Dosage: 25 MG, DAILYDOSE ORAL
     Route: 048
     Dates: start: 20090801, end: 20091116
  3. ADALAT [Concomitant]
  4. DIOVAN [Concomitant]

REACTIONS (1)
  - CEREBELLAR HAEMORRHAGE [None]
